FAERS Safety Report 7436866-0 (Version None)
Quarter: 2011Q2

REPORT INFORMATION
  Report Type: 
  Country: None (occurrence: None)
  Receive Date: 20110426
  Receipt Date: 20101214
  Transmission Date: 20111010
  Serious: Yes (Other)
  Sender: FDA-Public Use
  Company Number: US-BAYER-201036470NA

PATIENT
  Age: 35 Year
  Sex: Female
  Weight: 67 kg

DRUGS (11)
  1. PEPCID [Concomitant]
     Route: 048
  2. UNKNOWN [Concomitant]
     Route: 048
  3. YAZ [Suspect]
     Indication: POLYCYSTIC OVARIES
  4. YASMIN [Suspect]
     Indication: POLYCYSTIC OVARIES
  5. REGLAN [Concomitant]
     Route: 048
  6. OXYCET [Concomitant]
  7. MICARDIS [Concomitant]
     Dosage: UNK
     Dates: end: 20070511
  8. TYLOX [Concomitant]
  9. YASMIN [Suspect]
     Indication: ORAL CONTRACEPTION
     Dosage: UNK UNK, QD
     Route: 048
     Dates: start: 20050301, end: 20090601
  10. YAZ [Suspect]
     Indication: ORAL CONTRACEPTION
     Dosage: UNK UNK, QD
     Route: 048
     Dates: start: 20061201, end: 20090101
  11. LEXAPRO [Concomitant]
     Dosage: 10 MG/20 MG
     Route: 048

REACTIONS (5)
  - DYSPNOEA [None]
  - GALLBLADDER DISORDER [None]
  - BILIARY DYSKINESIA [None]
  - PALPITATIONS [None]
  - CHOLECYSTITIS CHRONIC [None]
